FAERS Safety Report 5022478-5 (Version None)
Quarter: 2006Q2

REPORT INFORMATION
  Report Type: 
  Country: None (occurrence: None)
  Receive Date: 20060609
  Receipt Date: 20060302
  Transmission Date: 20061013
  Serious: Yes (Hospitalization)
  Sender: FDA-Public Use
  Company Number: JP-ROCHE-438665

PATIENT
  Age: 15 Year
  Sex: Female

DRUGS (3)
  1. TAMIFLU [Suspect]
     Indication: INFLUENZA
     Route: 048
     Dates: start: 20060217, end: 20060220
  2. CALONAL [Concomitant]
     Route: 048
     Dates: start: 20060217, end: 20060220
  3. MEDICON [Concomitant]
     Route: 048
     Dates: start: 20060217, end: 20060220

REACTIONS (1)
  - DEPRESSED LEVEL OF CONSCIOUSNESS [None]
